FAERS Safety Report 21538026 (Version 1)
Quarter: 2022Q4

REPORT INFORMATION
  Report Type: Spontaneous
  Country: US (occurrence: None)
  Receive Date: 20221101
  Receipt Date: 20221101
  Transmission Date: 20230113
  Serious: Yes (Hospitalization)
  Sender: FDA-Public Use
  Company Number: None

PATIENT
  Age: 18 Year
  Sex: Male
  Weight: 102.9 kg

DRUGS (5)
  1. BLEOMYCIN [Suspect]
     Active Substance: BLEOMYCIN SULFATE
     Dates: end: 20220505
  2. CISPLATIN [Suspect]
     Active Substance: CISPLATIN
     Dates: end: 20220819
  3. ETOPOSIDE [Suspect]
     Active Substance: ETOPOSIDE
     Dates: end: 20220819
  4. FILGRASTIM [Suspect]
     Active Substance: FILGRASTIM
     Dates: end: 20220820
  5. IFOSFAMIDE [Suspect]
     Active Substance: IFOSFAMIDE
     Dates: end: 20220819

REACTIONS (9)
  - Vomiting [None]
  - Dehydration [None]
  - Weight decreased [None]
  - Jaundice [None]
  - Leukocytosis [None]
  - Anaemia [None]
  - Thrombocytopenia [None]
  - Blast cells present [None]
  - Acute myeloid leukaemia [None]

NARRATIVE: CASE EVENT DATE: 20221020
